FAERS Safety Report 7454458-4 (Version None)
Quarter: 2011Q2

REPORT INFORMATION
  Report Type: 
  Country: None (occurrence: None)
  Receive Date: 20110425
  Receipt Date: 20110408
  Transmission Date: 20111010
  Serious: Yes (Other)
  Sender: FDA-Public Use
  Company Number: AUR-APL-2011-01238

PATIENT
  Age: 56 Year
  Sex: Male
  Weight: 72 kg

DRUGS (3)
  1. SIMVASTATIN [Suspect]
     Dates: start: 20110101
  2. ROSUVASTATIN [Concomitant]
  3. MONTEKULAST [Concomitant]

REACTIONS (1)
  - ABNORMAL LOSS OF WEIGHT [None]
